FAERS Safety Report 8424399-4 (Version None)
Quarter: 2012Q2

REPORT INFORMATION
  Report Type: 
  Country: None (occurrence: None)
  Receive Date: 20120608
  Receipt Date: 20110719
  Transmission Date: 20120825
  Serious: No
  Sender: FDA-Public Use
  Company Number: US-ASTRAZENECA-2011SE43032

PATIENT
  Age: 68 Year
  Sex: Female

DRUGS (2)
  1. SYMBICORT [Suspect]
     Indication: CHRONIC OBSTRUCTIVE PULMONARY DISEASE
     Dosage: 160/4.5 TWO PUFFS TWICE A DAY, 640 MCG TWO TIMES A DAY
     Route: 055
  2. PULMICORT FLEXHALER [Suspect]
     Route: 055

REACTIONS (2)
  - DRY THROAT [None]
  - VIRAL INFECTION [None]
